FAERS Safety Report 17684009 (Version 1)
Quarter: 2020Q2

REPORT INFORMATION
  Report Type: Spontaneous
  Country: IN (occurrence: IN)
  Receive Date: 20200420
  Receipt Date: 20200420
  Transmission Date: 20200714
  Serious: Yes (Other)
  Sender: FDA-Public Use
  Company Number: IN-CIPLA LTD.-2020IN02739

PATIENT

DRUGS (1)
  1. AMLIP [AMLODIPINE BESILATE] [Suspect]
     Active Substance: AMLODIPINE BESYLATE
     Indication: BLOOD PRESSURE ABNORMAL
     Dosage: 2.5 MILLIGRAM, QD (STRENGTH: 2.5 UNITS UNSPECIFIED)
     Route: 048
     Dates: start: 2019, end: 2020

REACTIONS (2)
  - Erectile dysfunction [Recovered/Resolved]
  - Sexual dysfunction [Recovered/Resolved]

NARRATIVE: CASE EVENT DATE: 2019
